FAERS Safety Report 6673640-7 (Version None)
Quarter: 2010Q2

REPORT INFORMATION
  Report Type: 
  Country: None (occurrence: None)
  Receive Date: 20100408
  Receipt Date: 20100326
  Transmission Date: 20101027
  Serious: Yes (Hospitalization, Other)
  Sender: FDA-Public Use
  Company Number: US-ELI_LILLY_AND_COMPANY-US201003008581

PATIENT
  Sex: Female

DRUGS (17)
  1. CYMBALTA [Suspect]
     Indication: DEPRESSION
     Dosage: 60 MG, DAILY (1/D)
  2. CYMBALTA [Suspect]
     Dosage: 120 MG, DAILY (1/D)
     Dates: start: 20090101
  3. FORTEO [Suspect]
     Indication: OSTEOPOROSIS
     Dosage: 20 UG, DAILY (1/D)
     Dates: start: 20090611
  4. OMEPRAZOLE [Concomitant]
  5. BENICAR [Concomitant]
  6. OSCAL /00108001/ [Concomitant]
     Indication: SUPPLEMENTATION THERAPY
     Dosage: UNK, 2/D
  7. CLORAZEPATE DIPOTASSIUM [Concomitant]
     Indication: TREMOR
     Dosage: 7.5 MG, AS NEEDED
  8. CARVEDILOL [Concomitant]
     Indication: BLOOD PRESSURE
     Dosage: 12.5 MG, 2/D
  9. FERROUS SULFATE TAB [Concomitant]
     Indication: MINERAL SUPPLEMENTATION
  10. NITROFURANTOIN [Concomitant]
     Indication: URINARY INCONTINENCE
     Dosage: 50 MG, UNK
  11. PLENDIL [Concomitant]
     Dosage: 10 MG, UNKNOWN
  12. VITAMIN D [Concomitant]
     Dosage: UNK, 2/D
  13. LYRICA [Concomitant]
     Dosage: 75 MG, 2/D
  14. VITAMIN C [Concomitant]
     Dosage: 1000 MG, UNKNOWN
  15. ZANTAC [Concomitant]
     Dosage: 150 MG, EACH EVENING
  16. SIMVASTATIN [Concomitant]
     Indication: BLOOD CHOLESTEROL INCREASED
     Dosage: 20 MG, UNKNOWN
  17. OXYCODONE [Concomitant]
     Indication: PAIN
     Dosage: UNK, AS NEEDED

REACTIONS (11)
  - BACK PAIN [None]
  - BONE DISORDER [None]
  - DISORIENTATION [None]
  - FALL [None]
  - HAND FRACTURE [None]
  - HUMERUS FRACTURE [None]
  - PAIN [None]
  - PAIN IN EXTREMITY [None]
  - SHOULDER ARTHROPLASTY [None]
  - SPINAL FRACTURE [None]
  - THERAPEUTIC RESPONSE DECREASED [None]
